FAERS Safety Report 7236482-X (Version None)
Quarter: 2011Q1

REPORT INFORMATION
  Report Type: 
  Country: None (occurrence: None)
  Receive Date: 20110111
  Receipt Date: 20101230
  Transmission Date: 20110831
  Serious: Yes (Other)
  Sender: FDA-Public Use
  Company Number: 2010AP002577

PATIENT
  Age: 13 Year
  Sex: Male

DRUGS (11)
  1. RISPERIDONE [Suspect]
     Indication: AUTISM
     Dosage: 0.25 MG; BID PO
     Route: 048
     Dates: start: 20060601
  2. RISPERIDONE [Suspect]
     Indication: ATTENTION DEFICIT/HYPERACTIVITY DISORDER
     Dosage: 0.25 MG; BID PO
     Route: 048
     Dates: start: 20060601
  3. RISPERIDONE [Suspect]
     Indication: AUTISM
     Dosage: 0.25 MG; BID PO
     Route: 048
     Dates: start: 20060601
  4. RISPERIDONE [Suspect]
     Indication: ATTENTION DEFICIT/HYPERACTIVITY DISORDER
     Dosage: 0.25 MG; BID PO
     Route: 048
     Dates: start: 20060601
  5. METHYLPHENIDATE HCL [Concomitant]
  6. PRED FORTE [Suspect]
     Dosage: QID IO, EYE_DROP; IO; QID, EYE_DROP; IO; TID, EYE_DROP; IO; BID
     Route: 031
  7. EQUASYM (METHYLPHENIDATE HYDROCHLORIDE) [Suspect]
     Indication: AUTISM
     Dosage: 50 MG; QD PO
     Route: 048
     Dates: start: 20060901
  8. EQUASYM (METHYLPHENIDATE HYDROCHLORIDE) [Suspect]
     Indication: ATTENTION DEFICIT/HYPERACTIVITY DISORDER
     Dosage: 50 MG; QD PO
     Route: 048
     Dates: start: 20060901
  9. EQUASYM (METHYLPHENIDATE HYDROCHLORIDE) [Suspect]
     Indication: AUTISM
     Dosage: 50 MG; QD PO
     Route: 048
     Dates: start: 20060901
  10. EQUASYM (METHYLPHENIDATE HYDROCHLORIDE) [Suspect]
     Indication: ATTENTION DEFICIT/HYPERACTIVITY DISORDER
     Dosage: 50 MG; QD PO
     Route: 048
     Dates: start: 20060901
  11. VEXOL [Suspect]
     Dosage: TID IO, EYE_DROP; IO; TID
     Route: 031

REACTIONS (12)
  - CSF PRESSURE INCREASED [None]
  - CONJUNCTIVITIS ALLERGIC [None]
  - EYELID OEDEMA [None]
  - HYPERSENSITIVITY [None]
  - OCULAR HYPERAEMIA [None]
  - EYE PAIN [None]
  - PAPILLOEDEMA [None]
  - BENIGN INTRACRANIAL HYPERTENSION [None]
  - EYE PRURITUS [None]
  - EYE SWELLING [None]
  - VISUAL IMPAIRMENT [None]
  - VISUAL ACUITY REDUCED [None]
